FAERS Safety Report 6119993-X (Version None)
Quarter: 2009Q1

REPORT INFORMATION
  Report Type: 
  Country: None (occurrence: None)
  Receive Date: 20090316
  Receipt Date: 20090309
  Transmission Date: 20090719
  Serious: Yes (Hospitalization)
  Sender: FDA-Public Use
  Company Number: FR-B.I. PHARMACEUTICALS,INC./RIDGEFIELD-2009-FF-00187FF

PATIENT
  Sex: Male

DRUGS (11)
  1. ASASANTINE LP [Suspect]
     Dosage: 200MG/25MG 2, 1 IN 1 DAY
     Route: 048
     Dates: end: 20090201
  2. ALDALIX [Concomitant]
     Dosage: 50MG/20MG (2, 1 IN 1 DAY)
     Route: 048
     Dates: end: 20090201
  3. ANDROCUR [Concomitant]
  4. MOPRAL [Concomitant]
  5. MONICOR [Concomitant]
  6. FOZITEC [Concomitant]
  7. SPECIAFOLDINE [Concomitant]
  8. DAFLON [Concomitant]
  9. PERMIXON [Concomitant]
  10. XYZAL [Concomitant]
  11. NAFTIDROFURYL [Concomitant]

REACTIONS (2)
  - HAEMATEMESIS [None]
  - HYPOCHROMIC ANAEMIA [None]
